FAERS Safety Report 4981946-2 (Version None)
Quarter: 2006Q2

REPORT INFORMATION
  Report Type: 
  Country: None (occurrence: None)
  Receive Date: 20060425
  Receipt Date: 20060412
  Transmission Date: 20061013
  Serious: Yes (Hospitalization, Disabling, Other)
  Sender: FDA-Public Use
  Company Number: US-MERCK-0604USA02258

PATIENT
  Age: 41 Year
  Sex: Male
  Weight: 132 kg

DRUGS (31)
  1. GLUCOPHAGE [Concomitant]
     Route: 065
  2. OXYCODONE HYDROCHLORIDE AND ACETAMINOPHEN [Concomitant]
     Route: 065
  3. REMERON [Concomitant]
     Route: 065
  4. METHYLPREDNISOLONE [Concomitant]
     Route: 065
  5. FUROSEMIDE [Concomitant]
     Route: 065
  6. ROXICET [Concomitant]
     Route: 065
  7. AMARYL [Concomitant]
     Route: 065
  8. PLAVIX [Concomitant]
     Route: 065
  9. WELLBUTRIN [Concomitant]
     Route: 065
  10. KLOR-CON [Concomitant]
     Route: 065
  11. [THERAPY UNSPECIFIED] [Concomitant]
     Route: 065
  12. VIOXX [Suspect]
     Indication: EXOSTOSIS
     Route: 048
     Dates: start: 19991101, end: 20040201
  13. VIOXX [Suspect]
     Indication: ARTHRITIS
     Route: 048
     Dates: start: 19991101, end: 20040201
  14. CEPHALEXIN [Concomitant]
     Route: 065
  15. ZITHROMAX [Concomitant]
     Route: 065
  16. POTASSIUM CHLORIDE [Concomitant]
     Route: 065
  17. CIPROFLOXACIN HCL [Concomitant]
     Route: 065
  18. CELEXA [Concomitant]
     Route: 065
  19. METFORMIN [Concomitant]
     Route: 065
  20. DILANTIN [Concomitant]
     Route: 065
  21. DIAZEPAM [Concomitant]
     Route: 065
  22. SKELAXIN [Concomitant]
     Route: 065
  23. PREVACID [Concomitant]
     Route: 065
  24. ALTACE [Concomitant]
     Route: 065
  25. ATENOLOL [Concomitant]
     Route: 065
  26. ZAROXOLYN [Concomitant]
     Route: 065
  27. NITROGLYCERIN [Concomitant]
     Route: 065
  28. COUMADIN [Concomitant]
     Route: 065
  29. NABUMETONE [Concomitant]
     Route: 065
  30. NITROGLYCERIN [Concomitant]
     Route: 065
  31. LIPITOR [Concomitant]
     Route: 065

REACTIONS (18)
  - BUNDLE BRANCH BLOCK RIGHT [None]
  - CARDIOMEGALY [None]
  - CEREBROVASCULAR ACCIDENT [None]
  - CHEST PAIN [None]
  - CONVULSION [None]
  - CORONARY ARTERIAL STENT INSERTION [None]
  - CORONARY ARTERY DISEASE [None]
  - DYSPNOEA [None]
  - HYPERHIDROSIS [None]
  - HYPERLIPIDAEMIA [None]
  - HYPOTHYROIDISM [None]
  - MIGRAINE [None]
  - MYOCARDIAL INFARCTION [None]
  - ROAD TRAFFIC ACCIDENT [None]
  - TRANSIENT ISCHAEMIC ATTACK [None]
  - UMBILICAL HERNIA [None]
  - VENTRICULAR EXTRASYSTOLES [None]
  - VENTRICULAR TACHYCARDIA [None]
